FAERS Safety Report 4971886-7 (Version None)
Quarter: 2006Q2

REPORT INFORMATION
  Report Type: 
  Country: None (occurrence: None)
  Receive Date: 20060413
  Receipt Date: 20050228
  Transmission Date: 20061013
  Serious: Yes (Hospitalization)
  Sender: FDA-Public Use
  Company Number: US-MERCK-0503USA00254

PATIENT
  Age: 72 Year
  Sex: Male
  Weight: 76 kg

DRUGS (5)
  1. VIOXX [Suspect]
     Indication: ARTHRALGIA
     Route: 048
     Dates: start: 20000901, end: 20040701
  2. NEURONTIN [Concomitant]
     Route: 065
  3. ELAVIL [Concomitant]
     Route: 065
  4. VICODIN [Concomitant]
     Route: 065
  5. LIPITOR [Concomitant]
     Route: 065

REACTIONS (16)
  - ACUTE MYOCARDIAL INFARCTION [None]
  - CARDIAC FAILURE CONGESTIVE [None]
  - CARDIAC OUTPUT DECREASED [None]
  - FLUID OVERLOAD [None]
  - HERNIA [None]
  - HYPERLIPIDAEMIA [None]
  - HYPONATRAEMIA [None]
  - HYPOXIA [None]
  - LEUKOCYTOSIS [None]
  - MASS [None]
  - MUSCULOSKELETAL DISCOMFORT [None]
  - ORTHOSTATIC HYPOTENSION [None]
  - OSTEOARTHRITIS [None]
  - PULMONARY OEDEMA [None]
  - VENTRICULAR DYSFUNCTION [None]
  - VENTRICULAR TACHYCARDIA [None]
